FAERS Safety Report 8420953-4 (Version None)
Quarter: 2012Q2

REPORT INFORMATION
  Report Type: 
  Country: None (occurrence: None)
  Receive Date: 20120608
  Receipt Date: 20120601
  Transmission Date: 20120825
  Serious: Yes (Other)
  Sender: FDA-Public Use
  Company Number: BE-PFIZER INC-2012132075

PATIENT
  Age: 63 Year
  Sex: Male

DRUGS (1)
  1. ESTRACYT [Suspect]
     Dosage: UNK
     Dates: start: 20120411

REACTIONS (1)
  - HEPATITIS TOXIC [None]
